FAERS Safety Report 17944074 (Version 1)
Quarter: 2020Q2

REPORT INFORMATION
  Report Type: Spontaneous
  Country: CA (occurrence: CA)
  Receive Date: 20200625
  Receipt Date: 20200625
  Transmission Date: 20200714
  Serious: Yes (Hospitalization, Other)
  Sender: FDA-Public Use
  Company Number: CA-ACCORD-186537

PATIENT
  Age: 35 Year
  Sex: Male

DRUGS (14)
  1. ARIPIPRAZOLE. [Suspect]
     Active Substance: ARIPIPRAZOLE
     Indication: PRODUCT USED FOR UNKNOWN INDICATION
     Dosage: 1 EVERY 1 DAYS
     Route: 048
  2. QUETIAPINE. [Interacting]
     Active Substance: QUETIAPINE
     Indication: POOR QUALITY SLEEP
  3. LEVOMEPROMAZINE [Interacting]
     Active Substance: LEVOMEPROMAZINE
     Indication: POOR QUALITY SLEEP
  4. ZOPICLONE [Interacting]
     Active Substance: ZOPICLONE
     Indication: POOR QUALITY SLEEP
  5. VORTIOXETINE. [Concomitant]
     Active Substance: VORTIOXETINE
     Indication: ANTIDEPRESSANT THERAPY
     Dosage: 1 EVERY 1 DAYS
     Route: 048
  6. METHOTRIMEPRAZINE [Interacting]
     Active Substance: LEVOMEPROMAZINE
     Indication: POOR QUALITY SLEEP
  7. BENZATROPINE/BENZATROPINE MESILATE [Concomitant]
     Active Substance: BENZTROPINE
     Indication: DYSTONIC TREMOR
  8. LITHIUM. [Interacting]
     Active Substance: LITHIUM
     Indication: AFFECTIVE DISORDER
     Dosage: 1 EVERY 1 DAYS
     Route: 048
  9. CLONAZEPAM. [Interacting]
     Active Substance: CLONAZEPAM
     Indication: DYSTONIA
  10. OXAZEPAM. [Interacting]
     Active Substance: OXAZEPAM
     Indication: POOR QUALITY SLEEP
  11. TEMAZEPAM. [Interacting]
     Active Substance: TEMAZEPAM
     Indication: POOR QUALITY SLEEP
  12. BENZATROPINE/BENZATROPINE MESILATE [Interacting]
     Active Substance: BENZTROPINE
     Indication: DYSTONIA
  13. ARIPIPRAZOLE. [Interacting]
     Active Substance: ARIPIPRAZOLE
     Indication: PRODUCT USED FOR UNKNOWN INDICATION
     Route: 030
  14. SERTRALINE [Concomitant]
     Active Substance: SERTRALINE HYDROCHLORIDE
     Indication: DEPRESSED MOOD

REACTIONS (6)
  - Dystonia [Unknown]
  - Therapeutic product effect incomplete [Unknown]
  - Dystonic tremor [Unknown]
  - Restlessness [Unknown]
  - Drug ineffective [Unknown]
  - Drug interaction [Unknown]
